FAERS Safety Report 16059983 (Version 3)
Quarter: 2019Q2

REPORT INFORMATION
  Report Type: Spontaneous
  Country: US (occurrence: US)
  Receive Date: 20190312
  Receipt Date: 20190516
  Transmission Date: 20190711
  Serious: Yes (Hospitalization, Other)
  Sender: FDA-Public Use
  Company Number: US-ROCHE-2280599

PATIENT
  Age: 45 Year
  Sex: Female
  Weight: 133.48 kg

DRUGS (8)
  1. KLONOPIN [Suspect]
     Active Substance: CLONAZEPAM
     Indication: DEPRESSION
  2. CELEXA [Concomitant]
     Active Substance: CITALOPRAM HYDROBROMIDE
     Indication: ANXIETY
  3. KLONOPIN [Suspect]
     Active Substance: CLONAZEPAM
     Indication: ANXIETY
     Route: 065
  4. GABAPENTIN. [Concomitant]
     Active Substance: GABAPENTIN
     Indication: MULTIPLE SCLEROSIS
     Dosage: ONGOING:YES
     Route: 065
  5. ESOMEPRAZOLE. [Suspect]
     Active Substance: ESOMEPRAZOLE MAGNESIUM
     Indication: PRODUCT USED FOR UNKNOWN INDICATION
     Route: 065
  6. OCREVUS [Suspect]
     Active Substance: OCRELIZUMAB
     Indication: RELAPSING-REMITTING MULTIPLE SCLEROSIS
     Route: 042
     Dates: start: 20190219
  7. CELEXA [Concomitant]
     Active Substance: CITALOPRAM HYDROBROMIDE
     Indication: DEPRESSION
  8. ZONEGRAN [Concomitant]
     Active Substance: ZONISAMIDE
     Indication: MIGRAINE
     Dosage: ONGOING:YES
     Route: 065

REACTIONS (5)
  - Clostridium difficile colitis [Recovered/Resolved]
  - Asthma [Not Recovered/Not Resolved]
  - Chronic obstructive pulmonary disease [Not Recovered/Not Resolved]
  - Urosepsis [Recovered/Resolved]
  - Migraine [Not Recovered/Not Resolved]

NARRATIVE: CASE EVENT DATE: 20190220
